FAERS Safety Report 7177474-9 (Version None)
Quarter: 2010Q4

REPORT INFORMATION
  Report Type: 
  Country: None (occurrence: None)
  Receive Date: 20101220
  Receipt Date: 20101209
  Transmission Date: 20110411
  Serious: Yes (Disabling)
  Sender: FDA-Public Use
  Company Number: JP-ROCHE-743221

PATIENT
  Sex: Male
  Weight: 62 kg

DRUGS (10)
  1. XELODA [Suspect]
     Indication: COLON CANCER
     Dosage: XELODA 300(CAPECITABINE) NOTE: IT IS ONE ADMINISTERING WEEKLY HOLIDAY MEDICINE FOR TWO WEEKS.
     Route: 048
     Dates: start: 20100819, end: 20100901
  2. XELODA [Suspect]
     Dosage: DRUG CHARACTERIZATION: INTERACTIVE
     Route: 048
     Dates: start: 20100909, end: 20100923
  3. XELODA [Suspect]
     Route: 048
     Dates: start: 20100930, end: 20101013
  4. XELODA [Suspect]
     Dosage: ACTION TAKEN: DISCONTINUED
     Route: 048
     Dates: start: 20101022, end: 20101104
  5. WARFARIN SODIUM [Suspect]
     Indication: COLON CANCER
     Dosage: ACTION TAKEN: DISCONTINUED
     Route: 048
     Dates: start: 20100830, end: 20101114
  6. DIART [Concomitant]
     Route: 048
     Dates: start: 20100915, end: 20101114
  7. SELARA [Concomitant]
     Route: 048
     Dates: start: 20101110, end: 20101114
  8. PROMAC [Concomitant]
     Dosage: NOTE: DOSAGE IS UNCERTAIN, NOTE: DOSAGE IS UNCERTAIN.
     Route: 048
  9. VITAMIN B-12 [Concomitant]
     Dosage: DOSE FORM: UNCERTAINTY, NOTE: DOSAGE IS UNCERTAIN.
     Route: 065
  10. VITAMIN B6 [Concomitant]
     Dosage: DOSE FORM: UNCERTAINTY, NOTE: DOSAGE IS UNCERTAIN.
     Route: 065

REACTIONS (3)
  - DRUG INTERACTION [None]
  - EXTRADURAL HAEMATOMA [None]
  - PALMAR-PLANTAR ERYTHRODYSAESTHESIA SYNDROME [None]
